FAERS Safety Report 8154038-1 (Version None)
Quarter: 2012Q1

REPORT INFORMATION
  Report Type: 
  Country: None (occurrence: None)
  Receive Date: 20120221
  Receipt Date: 20120221
  Transmission Date: 20120608
  Serious: Yes (Other)
  Sender: FDA-Public Use
  Company Number: None

PATIENT
  Age: 62 Year
  Sex: Female
  Weight: 66.678 kg

DRUGS (1)
  1. PLAVIX [Suspect]
     Dosage: ONE TABLET

REACTIONS (3)
  - RASH MACULAR [None]
  - THROAT TIGHTNESS [None]
  - RASH [None]
